FAERS Safety Report 24276355 (Version 1)
Quarter: 2024Q3

REPORT INFORMATION
  Report Type: Report from Study
  Country: DE (occurrence: DE)
  Receive Date: 20240903
  Receipt Date: 20240903
  Transmission Date: 20241016
  Serious: Yes (Life-Threatening)
  Sender: ROCHE
  Company Number: DE-ROCHE-10000068338

PATIENT
  Age: 42 Year
  Sex: Male

DRUGS (8)
  1. OCREVUS [Suspect]
     Active Substance: OCRELIZUMAB
     Indication: Multiple sclerosis
     Route: 042
     Dates: start: 20201030, end: 20230629
  2. OFATUMUMAB [Concomitant]
     Active Substance: OFATUMUMAB
     Dates: start: 20240326
  3. FINGOLIMOD [Concomitant]
     Active Substance: FINGOLIMOD
     Dates: start: 2016, end: 2016
  4. DIMETHYL FUMARATE [Concomitant]
     Active Substance: DIMETHYL FUMARATE
     Dates: start: 2015, end: 2015
  5. AMITRIPTYLINE HYDROCHLORIDE [Concomitant]
     Active Substance: AMITRIPTYLINE HYDROCHLORIDE
     Indication: Sleep disorder
  6. PAROXETINE [Concomitant]
     Active Substance: PAROXETINE
     Indication: Depression
  7. PREGABALIN [Concomitant]
     Active Substance: PREGABALIN
  8. INTERFERON BETA-1B [Concomitant]
     Active Substance: INTERFERON BETA-1B

REACTIONS (1)
  - Selective IgG subclass deficiency [Not Recovered/Not Resolved]

NARRATIVE: CASE EVENT DATE: 20231214
